FAERS Safety Report 25944473 (Version 1)
Quarter: 2025Q4

REPORT INFORMATION
  Report Type: Spontaneous
  Country: QA (occurrence: QA)
  Receive Date: 20251021
  Receipt Date: 20251021
  Transmission Date: 20260117
  Serious: Yes (Other)
  Sender: PFIZER
  Company Number: QA-PFIZER INC-PV202500123105

PATIENT
  Age: 31 Year
  Sex: Male

DRUGS (1)
  1. PIPERACILLIN SODIUM\TAZOBACTAM SODIUM [Suspect]
     Active Substance: PIPERACILLIN SODIUM\TAZOBACTAM SODIUM
     Indication: Arthritis bacterial
     Dosage: UNK

REACTIONS (2)
  - Idiosyncratic drug reaction [Recovering/Resolving]
  - Hepatic enzyme increased [Recovering/Resolving]
